FAERS Safety Report 17432245 (Version 2)
Quarter: 2020Q1

REPORT INFORMATION
  Report Type: Spontaneous
  Country: US (occurrence: US)
  Receive Date: 20200218
  Receipt Date: 20200305
  Transmission Date: 20200409
  Serious: No
  Sender: FDA-Public Use
  Company Number: US-SA-2020SA036753

PATIENT
  Age: 12 Year

DRUGS (2)
  1. DUPIXENT [Suspect]
     Active Substance: DUPILUMAB
     Indication: DERMATITIS ATOPIC
     Dosage: 400 MG, 1X
     Dates: start: 20190321, end: 20190321
  2. DUPIXENT [Suspect]
     Active Substance: DUPILUMAB
     Dosage: 200 MG
     Dates: start: 20190404

REACTIONS (5)
  - Ocular hyperaemia [Recovering/Resolving]
  - Condition aggravated [Recovering/Resolving]
  - Erythema [Recovering/Resolving]
  - Eye pruritus [Recovering/Resolving]
  - Pruritus [Recovering/Resolving]

NARRATIVE: CASE EVENT DATE: 20190325
